FAERS Safety Report 12607750 (Version 1)
Quarter: 2016Q3

REPORT INFORMATION
  Report Type: Spontaneous
  Country: US (occurrence: US)
  Receive Date: 20160729
  Receipt Date: 20160729
  Transmission Date: 20161109
  Serious: No
  Sender: FDA-Public Use
  Company Number: US-ELI_LILLY_AND_COMPANY-US201607012139

PATIENT
  Sex: Female

DRUGS (5)
  1. INVOKANA [Concomitant]
     Active Substance: CANAGLIFLOZIN
     Dosage: UNK, UNKNOWN
     Route: 065
  2. HUMALOG [Suspect]
     Active Substance: INSULIN LISPRO
     Indication: PRODUCT USED FOR UNKNOWN INDICATION
     Dosage: UNK UNK, UNKNOWN
     Route: 065
  3. HUMALOG [Suspect]
     Active Substance: INSULIN LISPRO
     Dosage: UNK UNK, UNKNOWN
     Route: 065
  4. METFORMIN [Concomitant]
     Active Substance: METFORMIN HYDROCHLORIDE
     Dosage: UNK, UNKNOWN
     Route: 065
  5. INSULIN HUMAN [Suspect]
     Active Substance: INSULIN HUMAN
     Indication: TYPE 2 DIABETES MELLITUS
     Dosage: 120 U, BID
     Route: 065
     Dates: start: 201606

REACTIONS (4)
  - Wrong technique in product usage process [Unknown]
  - Accidental underdose [Unknown]
  - Renal disorder [Unknown]
  - Insulin resistance [Unknown]
